FAERS Safety Report 12895190 (Version 1)
Quarter: 2016Q4

REPORT INFORMATION
  Report Type: Spontaneous
  Country: CA (occurrence: US)
  Receive Date: 20161028
  Receipt Date: 20161028
  Transmission Date: 20170207
  Serious: Yes (Hospitalization)
  Sender: FDA-Public Use
  Company Number: None

PATIENT
  Age: 46 Year
  Sex: Male
  Weight: 54.8 kg

DRUGS (4)
  1. LEUCOVORIN CALCIUM. [Suspect]
     Active Substance: LEUCOVORIN CALCIUM
     Dates: end: 20151223
  2. 5-FLUOROURACIL (5-FU) [Suspect]
     Active Substance: FLUOROURACIL
     Dates: end: 20151223
  3. TINZAPARIN [Concomitant]
     Active Substance: TINZAPARIN
  4. ELOXATIN [Suspect]
     Active Substance: OXALIPLATIN
     Dates: end: 20151223

REACTIONS (2)
  - Abdominal pain [None]
  - Gastric dilatation [None]

NARRATIVE: CASE EVENT DATE: 20160615
